FAERS Safety Report 12670786 (Version 1)
Quarter: 2016Q3

REPORT INFORMATION
  Report Type: Spontaneous
  Country: US (occurrence: US)
  Receive Date: 20160822
  Receipt Date: 20160822
  Transmission Date: 20161109
  Serious: No
  Sender: FDA-Public Use
  Company Number: US-JAZZ-2016-US-005922

PATIENT
  Sex: Female
  Weight: 78.5 kg

DRUGS (19)
  1. NUVIGIL [Concomitant]
     Active Substance: ARMODAFINIL
  2. XYREM [Suspect]
     Active Substance: SODIUM OXYBATE
     Dosage: BETWEEN 2.25 AND 3.25 TWICE NIGHTLY
     Route: 048
     Dates: start: 2016
  3. PRISTIQ EXTENDED-RELEASE [Concomitant]
     Active Substance: DESVENLAFAXINE SUCCINATE
  4. IMITREX [Concomitant]
     Active Substance: SUMATRIPTAN SUCCINATE
  5. XYREM [Suspect]
     Active Substance: SODIUM OXYBATE
     Indication: NARCOLEPSY
     Dosage: 2.25 G, BID
     Dates: start: 201601, end: 201602
  6. LINZESS [Concomitant]
     Active Substance: LINACLOTIDE
  7. METOPROLOL SUCCINATE. [Concomitant]
     Active Substance: METOPROLOL SUCCINATE
  8. SYNTHROID [Concomitant]
     Active Substance: LEVOTHYROXINE SODIUM
  9. TERBINAFINE. [Concomitant]
     Active Substance: TERBINAFINE
  10. VOLTAREN [Concomitant]
     Active Substance: DICLOFENAC SODIUM
  11. BENZACLIN [Concomitant]
     Active Substance: BENZOYL PEROXIDE\CLINDAMYCIN PHOSPHATE
  12. GOODYS [Concomitant]
     Active Substance: ACETAMINOPHEN\ASPIRIN\CAFFEINE
  13. SUBOXONE [Concomitant]
     Active Substance: BUPRENORPHINE HYDROCHLORIDE\NALOXONE HYDROCHLORIDE
  14. SUMATRIPTAN. [Concomitant]
     Active Substance: SUMATRIPTAN
  15. XYREM [Suspect]
     Active Substance: SODIUM OXYBATE
     Dosage: 3 G, BID
     Route: 048
     Dates: start: 201602, end: 201602
  16. AMLODIPINE BESYLATE. [Concomitant]
     Active Substance: AMLODIPINE BESYLATE
  17. LEVOTHYROXINE SODIUM. [Concomitant]
     Active Substance: LEVOTHYROXINE SODIUM
  18. ADDERALL [Concomitant]
     Active Substance: AMPHETAMINE ASPARTATE\AMPHETAMINE SULFATE\DEXTROAMPHETAMINE SACCHARATE\DEXTROAMPHETAMINE SULFATE
  19. GABAPENTIN. [Concomitant]
     Active Substance: GABAPENTIN

REACTIONS (1)
  - Acne [Not Recovered/Not Resolved]
